FAERS Safety Report 6684235-3 (Version None)
Quarter: 2010Q2

REPORT INFORMATION
  Report Type: 
  Country: None (occurrence: None)
  Receive Date: 20100416
  Receipt Date: 20100414
  Transmission Date: 20101027
  Serious: Yes (Other)
  Sender: FDA-Public Use
  Company Number: GB-ROXANE LABORATORIES, INC.-2010-RO-00420RO

PATIENT
  Age: 64 Year
  Sex: Male

DRUGS (13)
  1. MORPHINE [Suspect]
     Indication: ARTHRALGIA
  2. ATENOLOL [Suspect]
     Indication: HYPERTENSION
  3. ATENOLOL [Suspect]
     Indication: ATRIAL FIBRILLATION
  4. DOXAZOSIN [Suspect]
     Indication: HYPERTENSION
  5. DOXAZOSIN [Suspect]
     Indication: ATRIAL FIBRILLATION
  6. LISINOPRIL [Suspect]
     Indication: HYPERTENSION
  7. LISINOPRIL [Suspect]
     Indication: ATRIAL FIBRILLATION
  8. BENDROFLUAZIDE [Suspect]
     Indication: HYPERTENSION
  9. BENDROFLUAZIDE [Suspect]
     Indication: ATRIAL FIBRILLATION
  10. ACETAMINOPHEN AND CODEINE PHOSPHATE [Suspect]
     Indication: ARTHRALGIA
  11. GABAPENTIN [Suspect]
     Indication: NEURALGIA
  12. DICLOFENAC [Suspect]
     Indication: ARTHRALGIA
  13. SPIRONOLACTONE [Suspect]
     Indication: CARDIAC FAILURE

REACTIONS (6)
  - CARDIAC FAILURE [None]
  - CONSTIPATION [None]
  - DEHYDRATION [None]
  - DRUG INEFFECTIVE [None]
  - LYMPHOEDEMA [None]
  - PLEURAL EFFUSION [None]
